FAERS Safety Report 7071309-0 (Version None)
Quarter: 2010Q4

REPORT INFORMATION
  Report Type: 
  Country: None (occurrence: None)
  Receive Date: 20101028
  Receipt Date: 20101028
  Transmission Date: 20110411
  Serious: Yes (Other)
  Sender: FDA-Public Use
  Company Number: None

PATIENT
  Age: 15 Month
  Sex: Male
  Weight: 6.804 kg

DRUGS (2)
  1. FERROUS SULFATE DROPS 75 MG/0.6 ML QUALITEST [Suspect]
  2. FERROUS SULFATE DROPS 75 MG/1.0 ML QUALITEST [Suspect]

REACTIONS (3)
  - INTERCEPTED DRUG ADMINISTRATION ERROR [None]
  - MEDICATION ERROR [None]
  - PRODUCT LABEL ISSUE [None]
